FAERS Safety Report 7099553-7 (Version None)
Quarter: 2010Q4

REPORT INFORMATION
  Report Type: 
  Country: None (occurrence: None)
  Receive Date: 20101112
  Receipt Date: 20101109
  Transmission Date: 20110411
  Serious: Yes (Death, Hospitalization)
  Sender: FDA-Public Use
  Company Number: ZA-SANOFI-AVENTIS-2010SA066255

PATIENT
  Age: 68 Year
  Sex: Female
  Weight: 63 kg

DRUGS (4)
  1. TAXOTERE [Suspect]
     Route: 041
     Dates: start: 20101027, end: 20101027
  2. GRANOCYTE [Suspect]
     Indication: PROPHYLAXIS
     Dates: start: 20101028, end: 20101104
  3. CISPLATIN [Suspect]
     Route: 042
     Dates: start: 20101027, end: 20101027
  4. ESOMEPRAZOLE [Concomitant]
     Indication: DYSPEPSIA
     Route: 048

REACTIONS (2)
  - DEATH [None]
  - DEHYDRATION [None]
